FAERS Safety Report 8560418-2 (Version None)
Quarter: 2012Q3

REPORT INFORMATION
  Report Type: 
  Country: None (occurrence: None)
  Receive Date: 20120802
  Receipt Date: 20120606
  Transmission Date: 20120928
  Serious: Yes (Death)
  Sender: FDA-Public Use
  Company Number: FR-ROCHE-1095780

PATIENT
  Sex: Male

DRUGS (4)
  1. LEUCOVORIN CALCIUM [Concomitant]
     Dates: start: 20081208, end: 20090320
  2. FLUOROURACIL [Concomitant]
     Dates: start: 20081208, end: 20090320
  3. AVASTIN [Suspect]
     Indication: COLON CANCER
     Dates: start: 20081208, end: 20090320
  4. IRINOTECAN HCL [Concomitant]

REACTIONS (1)
  - DISEASE PROGRESSION [None]
